FAERS Safety Report 5846107-3 (Version None)
Quarter: 2008Q3

REPORT INFORMATION
  Report Type: 
  Country: None (occurrence: None)
  Receive Date: 20080814
  Receipt Date: 20080804
  Transmission Date: 20090109
  Serious: Yes (Other)
  Sender: FDA-Public Use
  Company Number: PE-PFIZER INC-2008065155

PATIENT
  Age: 70 Year
  Sex: Female

DRUGS (5)
  1. AMLODIPINE [Suspect]
     Indication: HYPERTENSION
  2. ATORVASTATIN [Suspect]
  3. ACETYLSALICYLIC ACID SRT [Suspect]
  4. HYDROCHLOROTHIAZIDE [Suspect]
  5. IRBESARTAN [Suspect]

REACTIONS (1)
  - COLITIS ISCHAEMIC [None]
